FAERS Safety Report 12105481 (Version 1)
Quarter: 2016Q1

REPORT INFORMATION
  Report Type: Spontaneous
  Country: US (occurrence: None)
  Receive Date: 20160222
  Receipt Date: 20160222
  Transmission Date: 20160526
  Serious: Yes (Life-Threatening)
  Sender: FDA-Public Use
  Company Number: None

PATIENT
  Age: 59 Year
  Sex: Male

DRUGS (1)
  1. CETUXIMAB [Suspect]
     Active Substance: CETUXIMAB
     Indication: NEOPLASM MALIGNANT
     Route: 042
     Dates: start: 20151125, end: 20151125

REACTIONS (4)
  - Stridor [None]
  - Cardio-respiratory arrest [None]
  - Respiratory depression [None]
  - Hypotension [None]

NARRATIVE: CASE EVENT DATE: 20151125
